FAERS Safety Report 22063754 (Version 4)
Quarter: 2023Q2

REPORT INFORMATION
  Report Type: Report from Study
  Country: BR (occurrence: BR)
  Receive Date: 20230306
  Receipt Date: 20230504
  Transmission Date: 20230722
  Serious: Yes (Other)
  Sender: FDA-Public Use
  Company Number: BR-002147023-NVSC2023BR010570

PATIENT
  Sex: Female
  Weight: 70 kg

DRUGS (8)
  1. RYDAPT [Suspect]
     Active Substance: MIDOSTAURIN
     Indication: Mastocytosis
     Dosage: 25 MG, QD (4 CAPSULES PER DAY) (PATIENT USED 4 CAPSULES OF 25MG IN THE MORNING AND 4 CAPSULES OF 25M
     Route: 065
  2. RYDAPT [Suspect]
     Active Substance: MIDOSTAURIN
     Dosage: 25 MG, Q12H (2 CAPSULES PER DAY)
     Route: 065
  3. RYDAPT [Suspect]
     Active Substance: MIDOSTAURIN
     Dosage: 4 DOSAGE FORM, BID (START DATE: 5 MONTHS AGO)
     Route: 048
  4. ATORVASTATIN [Suspect]
     Active Substance: ATORVASTATIN
     Indication: Blood cholesterol increased
     Dosage: 1 DOSAGE FORM, QD
     Route: 048
  5. LORATADINE [Concomitant]
     Active Substance: LORATADINE
     Indication: Hypersensitivity
     Dosage: 1 DOSAGE FORM, QD (IN THE MORNING)
     Route: 065
  6. LORATADINE [Concomitant]
     Active Substance: LORATADINE
     Dosage: 1 DOSAGE FORM, QD (START DATE: ABOUT 4 YEARS AGO)
     Route: 048
  7. HYDROXYZINE [Concomitant]
     Active Substance: HYDROXYZINE HYDROCHLORIDE
     Indication: Hypersensitivity
     Dosage: 2 DOSAGE FORM, QD (AT NIGHT) (PATIENT USED 3 TABLETS BEFORE MIDOSTAURIN)
     Route: 065
  8. HYDROXYZINE [Concomitant]
     Active Substance: HYDROXYZINE HYDROCHLORIDE
     Dosage: 2 DOSAGE FORM, QD (2 YEARS AGO)
     Route: 065

REACTIONS (12)
  - Hypoaesthesia [Recovering/Resolving]
  - Weight increased [Not Recovered/Not Resolved]
  - Tinnitus [Recovering/Resolving]
  - Abdominal distension [Recovering/Resolving]
  - Malaise [Recovered/Resolved]
  - Abdominal pain [Recovering/Resolving]
  - Dyspepsia [Recovering/Resolving]
  - Headache [Recovering/Resolving]
  - Aggression [Recovering/Resolving]
  - Head discomfort [Recovering/Resolving]
  - Decreased appetite [Recovering/Resolving]
  - Pain [Unknown]
